FAERS Safety Report 8995990 (Version 1)
Quarter: 2013Q1

REPORT INFORMATION
  Report Type: Spontaneous
  Country: US (occurrence: US)
  Receive Date: 20130103
  Receipt Date: 20130103
  Transmission Date: 20140127
  Serious: No
  Sender: FDA-Public Use
  Company Number: US-ABBOTT-12P-163-0999735-00

PATIENT
  Age: 51 Year
  Sex: Female
  Weight: 86.26 kg

DRUGS (1)
  1. SYNTHROID [Suspect]
     Indication: HYPOTHYROIDISM

REACTIONS (2)
  - Pruritus [Not Recovered/Not Resolved]
  - Middle insomnia [Not Recovered/Not Resolved]
